FAERS Safety Report 5853695-X (Version None)
Quarter: 2008Q3

REPORT INFORMATION
  Report Type: 
  Country: None (occurrence: None)
  Receive Date: 20080822
  Receipt Date: 20080818
  Transmission Date: 20090109
  Serious: Yes (Death, Hospitalization, Other)
  Sender: FDA-Public Use
  Company Number: PHHY2008FR15041

PATIENT
  Age: 33 Year
  Sex: Female

DRUGS (14)
  1. SANDIMMUNE [Suspect]
     Indication: ALLOGENIC BONE MARROW TRANSPLANTATION THERAPY
     Dosage: UNK
     Route: 042
     Dates: start: 20080511, end: 20080601
  2. SANDIMMUNE [Suspect]
     Dosage: UNK
     Dates: start: 20080603, end: 20080604
  3. FUROSEMIDE [Concomitant]
     Dosage: 20 MG/2 ML
  4. MORPHINE [Concomitant]
  5. CANCIDAS [Concomitant]
     Dosage: 50 MG, UNK
  6. ZYVOXID [Concomitant]
     Dosage: 2 MG/ML, UNK
  7. VITAMIN K1 ^ROCHE^ [Concomitant]
  8. SPASFON [Concomitant]
  9. GLYPRESSINE [Concomitant]
     Dosage: 1 MG, UNK
  10. TIENAM [Concomitant]
  11. DELURSAN [Concomitant]
  12. NEXIUM [Concomitant]
     Dosage: 40 MG, UNK
  13. IMOVANE [Concomitant]
  14. DUPHALAC                                /NET/ [Concomitant]

REACTIONS (28)
  - ALANINE AMINOTRANSFERASE INCREASED [None]
  - ANURIA [None]
  - ASCITES [None]
  - ASPARTATE AMINOTRANSFERASE INCREASED [None]
  - BLOOD LACTATE DEHYDROGENASE INCREASED [None]
  - BLOOD UREA INCREASED [None]
  - BONE MARROW TOXICITY [None]
  - CONJUNCTIVAL HAEMORRHAGE [None]
  - DIALYSIS [None]
  - ENCEPHALOPATHY [None]
  - FLUID OVERLOAD [None]
  - GAMMA-GLUTAMYLTRANSFERASE INCREASED [None]
  - HAEMOLYSIS [None]
  - HAPTOGLOBIN DECREASED [None]
  - HYPERKALAEMIA [None]
  - METABOLIC ACIDOSIS [None]
  - OEDEMA [None]
  - PETECHIAE [None]
  - PLATELET DESTRUCTION INCREASED [None]
  - PULMONARY OEDEMA [None]
  - RED BLOOD CELL SCHISTOCYTES PRESENT [None]
  - RENAL FAILURE ACUTE [None]
  - SHOCK [None]
  - THROMBOTIC MICROANGIOPATHY [None]
  - VENOOCCLUSIVE DISEASE [None]
  - VENOUS OCCLUSION [None]
  - VENTRICULAR ARRHYTHMIA [None]
  - WEIGHT INCREASED [None]
